FAERS Safety Report 4901298-3 (Version None)
Quarter: 2006Q1

REPORT INFORMATION
  Report Type: 
  Country: None (occurrence: None)
  Receive Date: 20060202
  Receipt Date: 20060123
  Transmission Date: 20060701
  Serious: Yes (Disabling, Other)
  Sender: FDA-Public Use
  Company Number: 2006005984

PATIENT
  Age: 58 Year
  Sex: Female

DRUGS (7)
  1. CELEBREX [Suspect]
     Indication: ARTHRITIS
     Dosage: 200 MG (200 MG, 1 IN 1 D),
     Dates: start: 20050101, end: 20051201
  2. CELEBREX [Suspect]
     Indication: NEURALGIA
     Dosage: 200 MG (200 MG, 1 IN 1 D),
     Dates: start: 20050101, end: 20051201
  3. NEURONTIN [Suspect]
     Indication: NEURALGIA
     Dosage: 600 MG (300 MG, 2 IN 1 D),
     Dates: start: 20060101
  4. LYRICA [Suspect]
     Indication: NEURALGIA
     Dosage: 150 MG (50 MG, 3 IN 1 D),
     Dates: start: 20051201, end: 20051201
  5. TRAMADOL (TRAMADOL) [Concomitant]
  6. VERAPAMIL [Concomitant]
  7. THYROID TAB [Concomitant]

REACTIONS (14)
  - ABASIA [None]
  - CONSTIPATION [None]
  - DRUG INEFFECTIVE [None]
  - FEELING ABNORMAL [None]
  - FIBROMYALGIA [None]
  - GASTROINTESTINAL PAIN [None]
  - HEADACHE [None]
  - INADEQUATE ANALGESIA [None]
  - INSOMNIA [None]
  - MALAISE [None]
  - PHARMACEUTICAL PRODUCT COMPLAINT [None]
  - SOMNOLENCE [None]
  - STOMACH DISCOMFORT [None]
  - WEIGHT INCREASED [None]
